FAERS Safety Report 9032159 (Version 2)
Quarter: 2013Q1

REPORT INFORMATION
  Report Type: Spontaneous
  Country: US (occurrence: US)
  Receive Date: 20130122
  Receipt Date: 20130204
  Transmission Date: 20140127
  Serious: No
  Sender: FDA-Public Use
  Company Number: US-VERTEX PHARMACEUTICALS INC.-2013-000904

PATIENT
  Age: 59 None
  Sex: Male
  Weight: 124 kg

DRUGS (12)
  1. INCIVEK [Suspect]
     Indication: HEPATITIS C
     Dosage: 750 MG, TID
     Route: 048
     Dates: start: 20121211
  2. RIBAVIRIN [Suspect]
     Indication: HEPATITIS C
     Dosage: 3 DF, BID
     Route: 048
     Dates: start: 20121211
  3. PEGASYS [Suspect]
     Indication: HEPATITIS C
     Dosage: 180 ?G, WEEKLY
     Route: 058
     Dates: start: 20121211
  4. ASPIRIN [Concomitant]
     Dosage: 81 MG, UNK
  5. FUROSEMIDE [Concomitant]
     Dosage: 40 MG, UNK
  6. NEXIUM                             /01479302/ [Concomitant]
     Dosage: 40 MG, UNK
  7. TAZTIA XT [Concomitant]
     Dosage: 360 MG, UNK
  8. CELEBREX [Concomitant]
     Dosage: 100 MG, UNK
  9. HYDROCODONE [Concomitant]
  10. LYRICA [Concomitant]
     Dosage: 75 MG, UNK
  11. TORSEMIDE [Concomitant]
     Dosage: 100 MG, UNK
  12. POTASSIUM [Concomitant]
     Dosage: 20 UNK, UNK

REACTIONS (5)
  - Dyspnoea [Not Recovered/Not Resolved]
  - Chapped lips [Unknown]
  - Swelling face [Not Recovered/Not Resolved]
  - Rash [Not Recovered/Not Resolved]
  - Pruritus [Recovered/Resolved]
